FAERS Safety Report 12409465 (Version 1)
Quarter: 2016Q2

REPORT INFORMATION
  Report Type: Report from Study
  Country: JP (occurrence: JP)
  Receive Date: 20160526
  Receipt Date: 20160526
  Transmission Date: 20160815
  Serious: Yes (Hospitalization)
  Sender: FDA-Public Use
  Company Number: JP-ASTRAZENECA-2016SE55513

PATIENT
  Age: 72 Year
  Sex: Male
  Weight: 74 kg

DRUGS (9)
  1. ATENOLOL. [Concomitant]
     Active Substance: ATENOLOL
     Route: 048
     Dates: start: 1995
  2. IOPAMIDOL [Concomitant]
     Active Substance: IOPAMIDOL
     Dosage: 80.0ML ONCE/SINGLE ADMINISTRATION
     Route: 042
     Dates: start: 20150811, end: 20150811
  3. HEPARINOID [Concomitant]
     Active Substance: CHONDROITIN SULFATE (BOVINE)
     Indication: DERMATITIS ACNEIFORM
     Dosage: DAILY
     Route: 003
     Dates: start: 20150706
  4. IRESSA [Suspect]
     Active Substance: GEFITINIB
     Indication: NON-SMALL CELL LUNG CANCER
     Route: 048
     Dates: start: 20150630
  5. CLOTIAZEPAM [Concomitant]
     Active Substance: CLOTIAZEPAM
     Route: 048
     Dates: start: 2005
  6. HYDROCORTISONE BUTYRATE. [Concomitant]
     Active Substance: HYDROCORTISONE BUTYRATE
     Indication: DERMATITIS ACNEIFORM
     Dosage: DAILY
     Route: 003
     Dates: start: 20150710
  7. NIFEDIPINE. [Concomitant]
     Active Substance: NIFEDIPINE
     Route: 048
     Dates: start: 1998
  8. IOPAMIDOL [Concomitant]
     Active Substance: IOPAMIDOL
     Dosage: 80 ML EVERY SIX WEEKS ONCE/SINGLE ADMINISTRATION
     Route: 042
     Dates: start: 20151027
  9. IOPAMIDOL [Concomitant]
     Active Substance: IOPAMIDOL
     Dosage: 80.0ML ONCE/SINGLE ADMINISTRATION
     Route: 042
     Dates: start: 20150915, end: 20150915

REACTIONS (1)
  - Prostate cancer [Not Recovered/Not Resolved]

NARRATIVE: CASE EVENT DATE: 20160517
